FAERS Safety Report 19943714 (Version 1)
Quarter: 2021Q4

REPORT INFORMATION
  Report Type: Spontaneous
  Country: US (occurrence: US)
  Receive Date: 20211007
  Receipt Date: 20211007
  Transmission Date: 20220303
  Serious: No
  Sender: FDA-Public Use
  Company Number: None

PATIENT
  Age: 3 Year
  Sex: Female

DRUGS (1)
  1. AFINITOR DISPERZ [Suspect]
     Active Substance: EVEROLIMUS
     Route: 048
     Dates: start: 202107

REACTIONS (3)
  - Mouth ulceration [None]
  - Abdominal discomfort [None]
  - Blood cholesterol increased [None]

NARRATIVE: CASE EVENT DATE: 20211007
